FAERS Safety Report 8179055-7 (Version None)
Quarter: 2012Q1

REPORT INFORMATION
  Report Type: 
  Country: None (occurrence: None)
  Receive Date: 20120302
  Receipt Date: 20120220
  Transmission Date: 20120608
  Serious: Yes (Other)
  Sender: FDA-Public Use
  Company Number: FR-ROCHE-1044509

PATIENT
  Sex: Female
  Weight: 80 kg

DRUGS (2)
  1. LUCENTIS [Suspect]
     Route: 050
     Dates: start: 20111103
  2. LUCENTIS [Suspect]
     Indication: AGE-RELATED MACULAR DEGENERATION
     Route: 050
     Dates: start: 20111004

REACTIONS (3)
  - RETINAL DETACHMENT [None]
  - CYSTOID MACULAR OEDEMA [None]
  - CATARACT TRAUMATIC [None]
